FAERS Safety Report 8673320 (Version 3)
Quarter: 2012Q4

REPORT INFORMATION
  Report Type: 
  Country: TR (occurrence: TR)
  Receive Date: 20120719
  Receipt Date: 20120906
  Transmission Date: 20130627
  Serious: Yes (Other)
  Sender: FDA-Public Use
  Company Number: PHHY2012TR060295

PATIENT
  Sex: Female

DRUGS (2)
  1. SANDOSTATIN LAR [Suspect]
     Indication: ACROMEGALY
     Dosage: 30 mg, QMO
     Route: 030
  2. SANDOSTATIN LAR [Suspect]
     Dosage: 30 mg, every 28 days
     Route: 030

REACTIONS (1)
  - Large intestine polyp [Unknown]
